FAERS Safety Report 24210030 (Version 1)
Quarter: 2024Q3

REPORT INFORMATION
  Report Type: Spontaneous
  Country: US (occurrence: US)
  Receive Date: 20240814
  Receipt Date: 20240814
  Transmission Date: 20241016
  Serious: Yes (Other)
  Sender: APPCO PHARMA
  Company Number: US-Appco Pharma LLC-2160409

PATIENT
  Age: 35 Year
  Sex: Female
  Weight: 63 kg

DRUGS (8)
  1. VENLAFAXINE [Suspect]
     Active Substance: VENLAFAXINE HYDROCHLORIDE
     Indication: Depression
     Route: 065
     Dates: start: 20230111
  2. NICOTINE [Suspect]
     Active Substance: NICOTINE
     Route: 065
  3. Insulin (NPH) [Concomitant]
     Route: 065
     Dates: start: 20230823
  4. ONDANSETRON [Concomitant]
     Active Substance: ONDANSETRON
     Route: 065
     Dates: start: 20230405
  5. MELOXICAM [Concomitant]
     Active Substance: MELOXICAM
     Route: 065
     Dates: start: 20230111, end: 20230215
  6. CLONAZEPAM [Concomitant]
     Active Substance: CLONAZEPAM
     Route: 065
     Dates: start: 20230111, end: 20230215
  7. Amphetamine mix IR [Concomitant]
     Route: 065
     Dates: start: 20230111
  8. LURASIDONE HYDROCHLORIDE [Suspect]
     Active Substance: LURASIDONE HYDROCHLORIDE
     Route: 065
     Dates: start: 20230111

REACTIONS (4)
  - Gestational diabetes [Unknown]
  - Gestational hypertension [Unknown]
  - Maternal exposure during pregnancy [Unknown]
  - Postpartum haemorrhage [Recovering/Resolving]
